FAERS Safety Report 6410672-8 (Version None)
Quarter: 2009Q4

REPORT INFORMATION
  Report Type: 
  Country: None (occurrence: None)
  Receive Date: 20091021
  Receipt Date: 20091021
  Transmission Date: 20100525
  Serious: Yes (Other)
  Sender: FDA-Public Use
  Company Number: None

PATIENT
  Age: 64 Year
  Sex: Female
  Weight: 56.4 kg

DRUGS (7)
  1. ROC RETINOL CORREXION DEEP WRINKLE SERUM - N/A ROC [Suspect]
     Indication: THERAPEUTIC SKIN CARE TOPICAL
     Dosage: TOPICAL
     Route: 061
     Dates: start: 20090226
  2. PROCARDIA [Concomitant]
  3. XANAX [Concomitant]
  4. TENORMIN [Concomitant]
  5. CELEXA [Concomitant]
  6. ATENOLOL [Concomitant]
  7. ASPIRIN [Concomitant]

REACTIONS (1)
  - ANAPHYLACTIC REACTION [None]
